FAERS Safety Report 15790183 (Version 1)
Quarter: 2019Q1

REPORT INFORMATION
  Report Type: Spontaneous
  Country: US (occurrence: US)
  Receive Date: 20190104
  Receipt Date: 20190104
  Transmission Date: 20190417
  Serious: No
  Sender: FDA-Public Use
  Company Number: US-SA-2019SA001331

PATIENT
  Age: 61 Year
  Sex: Male

DRUGS (1)
  1. LANTUS SOLOSTAR [Suspect]
     Active Substance: INSULIN GLARGINE
     Dosage: 42 UNITS IN MORNING AND 42 UNITS IN EVENING
     Route: 065
     Dates: start: 2000

REACTIONS (2)
  - Product use issue [Unknown]
  - Device operational issue [Unknown]
